FAERS Safety Report 7549578-X (Version None)
Quarter: 2011Q2

REPORT INFORMATION
  Report Type: 
  Country: None (occurrence: None)
  Receive Date: 20110615
  Receipt Date: 20110607
  Transmission Date: 20111010
  Serious: Yes (Other)
  Sender: FDA-Public Use
  Company Number: A0924573A

PATIENT
  Age: 69 Year
  Sex: Male

DRUGS (5)
  1. ASPIRIN [Concomitant]
  2. TRICOR [Concomitant]
  3. RAMIPRIL [Concomitant]
  4. CRESTOR [Concomitant]
  5. COREG CR [Suspect]
     Indication: CORONARY ARTERY DISEASE
     Dosage: 80MG PER DAY
     Route: 048
     Dates: start: 20030101

REACTIONS (9)
  - HYPOTENSION [None]
  - SYNCOPE [None]
  - ASTHENIA [None]
  - BLOOD PRESSURE FLUCTUATION [None]
  - DIZZINESS [None]
  - PRODUCT QUALITY ISSUE [None]
  - BLOOD PRESSURE DIASTOLIC DECREASED [None]
  - VISUAL IMPAIRMENT [None]
  - HYPERTENSION [None]
